FAERS Safety Report 4534786-2 (Version None)
Quarter: 2004Q4

REPORT INFORMATION
  Report Type: 
  Country: None (occurrence: None)
  Receive Date: 20041222
  Receipt Date: 20040305
  Transmission Date: 20050328
  Serious: No
  Sender: FDA-Public Use
  Company Number: US-BRISTOL-MYERS SQUIBB COMPANY-12526901

PATIENT
  Age: 39 Year
  Sex: Female

DRUGS (6)
  1. PRAVACHOL [Suspect]
     Indication: LIPIDS INCREASED
     Route: 048
     Dates: start: 20030901, end: 20031201
  2. ZYRTEC [Concomitant]
     Route: 048
  3. ZOLOFT [Concomitant]
     Route: 048
  4. ELAVIL [Concomitant]
     Route: 048
  5. ESTRADIOL [Concomitant]
     Route: 048
  6. MULTI-VITAMIN [Concomitant]
     Route: 048

REACTIONS (1)
  - BLOOD TRIGLYCERIDES INCREASED [None]
